FAERS Safety Report 6958979-X (Version None)
Quarter: 2010Q3

REPORT INFORMATION
  Report Type: 
  Country: None (occurrence: None)
  Receive Date: 20100831
  Receipt Date: 20100819
  Transmission Date: 20110219
  Serious: Yes (Other)
  Sender: FDA-Public Use
  Company Number: JP-PFIZER INC-2010104312

PATIENT

DRUGS (1)
  1. HALCION [Suspect]
     Dosage: UNK
     Route: 048

REACTIONS (2)
  - DRUG ERUPTION [None]
  - DYSPNOEA [None]
